FAERS Safety Report 13078451 (Version 1)
Quarter: 2017Q1

REPORT INFORMATION
  Report Type: Spontaneous
  Country: IT (occurrence: IT)
  Receive Date: 20170102
  Receipt Date: 20170102
  Transmission Date: 20170428
  Serious: Yes (Hospitalization, Other)
  Sender: FDA-Public Use
  Company Number: IT-BRISTOL-MYERS SQUIBB COMPANY-BMS-2016-110446

PATIENT
  Age: 65 Year
  Sex: Male

DRUGS (9)
  1. CRESTOR [Suspect]
     Active Substance: ROSUVASTATIN CALCIUM
     Indication: PRODUCT USED FOR UNKNOWN INDICATION
     Dosage: 10 MG, UNK
     Route: 048
  2. STILIDEN [Concomitant]
     Active Substance: PAROXETINE HYDROCHLORIDE
     Indication: DEPRESSION
     Route: 065
  3. EUTIMIL [Suspect]
     Active Substance: PAROXETINE HYDROCHLORIDE
     Indication: DEPRESSION
     Dosage: UNK
     Route: 048
     Dates: start: 20160715
  4. MUSCORIL [Concomitant]
     Active Substance: THIOCOLCHICOSIDE
     Indication: TINNITUS
     Dosage: 4 MG, UNK
     Route: 048
  5. SEREUPIN [Suspect]
     Active Substance: PAROXETINE HYDROCHLORIDE
     Indication: HYPERCHOLESTEROLAEMIA
     Route: 048
  6. CIPRALEX [Suspect]
     Active Substance: ESCITALOPRAM OXALATE
     Indication: DEPRESSION
     Route: 065
  7. DIAMOX                             /00016901/ [Concomitant]
     Active Substance: ACETAZOLAMIDE
     Indication: TINNITUS
     Dosage: 250 MG, UNK
     Route: 048
  8. GLUCOPHAGE [Suspect]
     Active Substance: METFORMIN HYDROCHLORIDE
     Indication: DIABETES MELLITUS
     Dosage: 500 MG, UNK
     Route: 065
  9. ESOPRAL                            /01479301/ [Concomitant]
     Indication: OESOPHAGITIS
     Dosage: 20 MG, UNK
     Route: 048

REACTIONS (4)
  - Petechiae [Recovered/Resolved with Sequelae]
  - Gingival bleeding [Recovered/Resolved with Sequelae]
  - Tinnitus [Recovered/Resolved with Sequelae]
  - Immune thrombocytopenic purpura [Recovered/Resolved with Sequelae]

NARRATIVE: CASE EVENT DATE: 20160727
